FAERS Safety Report 7430428-7 (Version None)
Quarter: 2011Q2

REPORT INFORMATION
  Report Type: 
  Country: None (occurrence: None)
  Receive Date: 20110421
  Receipt Date: 20110414
  Transmission Date: 20111010
  Serious: Yes (Other)
  Sender: FDA-Public Use
  Company Number: CHPA2011US05431

PATIENT
  Sex: Female
  Weight: 61.224 kg

DRUGS (3)
  1. GAS-X PREVENTION [Suspect]
     Indication: FLATULENCE
     Dosage: 1 DF, QD
     Route: 048
     Dates: start: 20110407, end: 20110413
  2. BENICAR [Concomitant]
     Indication: HYPERTENSION
     Dosage: UNK, UNK
  3. PLAVIX [Concomitant]
     Indication: CEREBROVASCULAR ACCIDENT
     Dosage: UNK, UNK

REACTIONS (2)
  - EPISTAXIS [None]
  - ASTHMA [None]
